FAERS Safety Report 6044935-5 (Version None)
Quarter: 2009Q1

REPORT INFORMATION
  Report Type: 
  Country: None (occurrence: None)
  Receive Date: 20090116
  Receipt Date: 20090116
  Transmission Date: 20090719
  Serious: No
  Sender: FDA-Public Use
  Company Number: None

PATIENT
  Age: 72 Year
  Sex: Female
  Weight: 88.905 kg

DRUGS (2)
  1. LOTEMAX [Suspect]
     Indication: EYE PAIN
     Dosage: 1 DROP PER EYE 2 DAY 2 A DAY
     Dates: start: 20081204
  2. LOTEMAX [Suspect]
     Indication: EYE PAIN
     Dosage: 1 DROP PER EYE 2 DAY 2 A DAY
     Dates: start: 20081205

REACTIONS (3)
  - OCULAR HYPERAEMIA [None]
  - SWELLING FACE [None]
  - VISUAL IMPAIRMENT [None]
